FAERS Safety Report 6202316-5 (Version None)
Quarter: 2009Q2

REPORT INFORMATION
  Report Type: 
  Country: None (occurrence: None)
  Receive Date: 20090521
  Receipt Date: 20090506
  Transmission Date: 20091009
  Serious: Yes (Other)
  Sender: FDA-Public Use
  Company Number: JPI-P-005592

PATIENT
  Age: 55 Year
  Sex: Female
  Weight: 99.7913 kg

DRUGS (20)
  1. XYREM [Suspect]
     Indication: AMNESIA
     Dosage: 9 GM (4.5 GM, 2 IN 1 D), ORAL, 18 GM (9 GM, 2 IN 1 D), ORAL, 13.5 GM (4.5 GM, 3 IN 1 D), ORAL
     Route: 048
     Dates: start: 20081106
  2. XYREM [Suspect]
     Indication: DYSSOMNIA
     Dosage: 9 GM (4.5 GM, 2 IN 1 D), ORAL, 18 GM (9 GM, 2 IN 1 D), ORAL, 13.5 GM (4.5 GM, 3 IN 1 D), ORAL
     Route: 048
     Dates: start: 20081106
  3. XYREM [Suspect]
     Indication: INSOMNIA
     Dosage: 9 GM (4.5 GM, 2 IN 1 D), ORAL, 18 GM (9 GM, 2 IN 1 D), ORAL, 13.5 GM (4.5 GM, 3 IN 1 D), ORAL
     Route: 048
     Dates: start: 20081106
  4. XYREM [Suspect]
     Indication: SLEEP APNOEA SYNDROME
     Dosage: 9 GM (4.5 GM, 2 IN 1 D), ORAL, 18 GM (9 GM, 2 IN 1 D), ORAL, 13.5 GM (4.5 GM, 3 IN 1 D), ORAL
     Route: 048
     Dates: start: 20081106
  5. XYREM [Suspect]
     Indication: SOMNAMBULISM
     Dosage: 9 GM (4.5 GM, 2 IN 1 D), ORAL, 18 GM (9 GM, 2 IN 1 D), ORAL, 13.5 GM (4.5 GM, 3 IN 1 D), ORAL
     Route: 048
     Dates: start: 20081106
  6. XYREM [Suspect]
     Indication: SOMNOLENCE
     Dosage: 9 GM (4.5 GM, 2 IN 1 D), ORAL, 18 GM (9 GM, 2 IN 1 D), ORAL, 13.5 GM (4.5 GM, 3 IN 1 D), ORAL
     Route: 048
     Dates: start: 20081106
  7. XYREM [Suspect]
     Indication: AMNESIA
     Dosage: 9 GM (4.5 GM, 2 IN 1 D), ORAL, 18 GM (9 GM, 2 IN 1 D), ORAL, 13.5 GM (4.5 GM, 3 IN 1 D), ORAL
     Route: 048
     Dates: start: 20090101
  8. XYREM [Suspect]
     Indication: DYSSOMNIA
     Dosage: 9 GM (4.5 GM, 2 IN 1 D), ORAL, 18 GM (9 GM, 2 IN 1 D), ORAL, 13.5 GM (4.5 GM, 3 IN 1 D), ORAL
     Route: 048
     Dates: start: 20090101
  9. XYREM [Suspect]
     Indication: INSOMNIA
     Dosage: 9 GM (4.5 GM, 2 IN 1 D), ORAL, 18 GM (9 GM, 2 IN 1 D), ORAL, 13.5 GM (4.5 GM, 3 IN 1 D), ORAL
     Route: 048
     Dates: start: 20090101
  10. XYREM [Suspect]
     Indication: SLEEP APNOEA SYNDROME
     Dosage: 9 GM (4.5 GM, 2 IN 1 D), ORAL, 18 GM (9 GM, 2 IN 1 D), ORAL, 13.5 GM (4.5 GM, 3 IN 1 D), ORAL
     Route: 048
     Dates: start: 20090101
  11. XYREM [Suspect]
     Indication: SOMNAMBULISM
     Dosage: 9 GM (4.5 GM, 2 IN 1 D), ORAL, 18 GM (9 GM, 2 IN 1 D), ORAL, 13.5 GM (4.5 GM, 3 IN 1 D), ORAL
     Route: 048
     Dates: start: 20090101
  12. XYREM [Suspect]
     Indication: SOMNOLENCE
     Dosage: 9 GM (4.5 GM, 2 IN 1 D), ORAL, 18 GM (9 GM, 2 IN 1 D), ORAL, 13.5 GM (4.5 GM, 3 IN 1 D), ORAL
     Route: 048
     Dates: start: 20090101
  13. XYREM [Suspect]
     Indication: AMNESIA
     Dosage: 9 GM (4.5 GM, 2 IN 1 D), ORAL, 18 GM (9 GM, 2 IN 1 D), ORAL, 13.5 GM (4.5 GM, 3 IN 1 D), ORAL
     Route: 048
     Dates: start: 20090212
  14. XYREM [Suspect]
     Indication: DYSSOMNIA
     Dosage: 9 GM (4.5 GM, 2 IN 1 D), ORAL, 18 GM (9 GM, 2 IN 1 D), ORAL, 13.5 GM (4.5 GM, 3 IN 1 D), ORAL
     Route: 048
     Dates: start: 20090212
  15. XYREM [Suspect]
     Indication: INSOMNIA
     Dosage: 9 GM (4.5 GM, 2 IN 1 D), ORAL, 18 GM (9 GM, 2 IN 1 D), ORAL, 13.5 GM (4.5 GM, 3 IN 1 D), ORAL
     Route: 048
     Dates: start: 20090212
  16. XYREM [Suspect]
     Indication: SLEEP APNOEA SYNDROME
     Dosage: 9 GM (4.5 GM, 2 IN 1 D), ORAL, 18 GM (9 GM, 2 IN 1 D), ORAL, 13.5 GM (4.5 GM, 3 IN 1 D), ORAL
     Route: 048
     Dates: start: 20090212
  17. XYREM [Suspect]
     Indication: SOMNAMBULISM
     Dosage: 9 GM (4.5 GM, 2 IN 1 D), ORAL, 18 GM (9 GM, 2 IN 1 D), ORAL, 13.5 GM (4.5 GM, 3 IN 1 D), ORAL
     Route: 048
     Dates: start: 20090212
  18. XYREM [Suspect]
     Indication: SOMNOLENCE
     Dosage: 9 GM (4.5 GM, 2 IN 1 D), ORAL, 18 GM (9 GM, 2 IN 1 D), ORAL, 13.5 GM (4.5 GM, 3 IN 1 D), ORAL
     Route: 048
     Dates: start: 20090212
  19. VENLAFAXINE HCL [Concomitant]
  20. UNSPECIFIED BLOOD PRESSURE MEDICATION [Concomitant]

REACTIONS (10)
  - CONFUSIONAL STATE [None]
  - DIARRHOEA [None]
  - DIZZINESS [None]
  - DYSARTHRIA [None]
  - FAECAL INCONTINENCE [None]
  - FALL [None]
  - LOWER LIMB FRACTURE [None]
  - MIDDLE INSOMNIA [None]
  - NAUSEA [None]
  - SOMNAMBULISM [None]
